FAERS Safety Report 5230110-0 (Version None)
Quarter: 2007Q1

REPORT INFORMATION
  Report Type: 
  Country: None (occurrence: None)
  Receive Date: 20070206
  Receipt Date: 20060711
  Transmission Date: 20070707
  Serious: No
  Sender: FDA-Public Use
  Company Number: US-GLAXOSMITHKLINE-A0611833A

PATIENT
  Age: 56 Year
  Sex: Male

DRUGS (5)
  1. PAXIL [Suspect]
     Indication: DEPRESSION
     Dosage: 25MG PER DAY
     Route: 048
     Dates: start: 20060705, end: 20060710
  2. CAPTOPRIL [Concomitant]
  3. ATENOLOL [Concomitant]
  4. CARDIZEM [Concomitant]
  5. LIPITOR [Concomitant]

REACTIONS (6)
  - BLOOD PRESSURE DECREASED [None]
  - DECREASED APPETITE [None]
  - DIARRHOEA [None]
  - FEELING ABNORMAL [None]
  - SOMNOLENCE [None]
  - TREMOR [None]
